FAERS Safety Report 5760640-4 (Version None)
Quarter: 2008Q2

REPORT INFORMATION
  Report Type: 
  Country: None (occurrence: None)
  Receive Date: 20080602
  Receipt Date: 20080516
  Transmission Date: 20081010
  Serious: Yes (Other)
  Sender: FDA-Public Use
  Company Number: US-1166164

PATIENT
  Age: 24 Month
  Sex: Female

DRUGS (1)
  1. IOPIDINE [Suspect]
     Dosage: ORAL
     Route: 048

REACTIONS (7)
  - ACCIDENTAL DRUG INTAKE BY CHILD [None]
  - APNOEA [None]
  - BRADYCARDIA [None]
  - HYPERHIDROSIS [None]
  - LETHARGY [None]
  - PALLOR [None]
  - RESPIRATORY RATE INCREASED [None]
